FAERS Safety Report 10048164 (Version 1)
Quarter: 2014Q1

REPORT INFORMATION
  Report Type: Spontaneous
  Country: US (occurrence: None)
  Receive Date: 20140327
  Receipt Date: 20140327
  Transmission Date: 20141002
  Serious: Yes (Other)
  Sender: FDA-Public Use
  Company Number: 2014-US-003023

PATIENT
  Age: 37 Year
  Sex: Male

DRUGS (6)
  1. XYREM [Suspect]
     Indication: NARCOLEPSY
     Route: 048
     Dates: start: 201401
  2. XYREM [Suspect]
     Indication: CATAPLEXY
     Route: 048
     Dates: start: 201401
  3. LISINOPRIL (LISINOPRIL) [Concomitant]
  4. HYDROCHLOROTHIAZIDE (HYDROCHLOROTHIAZIDE) [Concomitant]
  5. KEPPRA (LEVETIRACETAM) [Concomitant]
  6. LAMICTAL (LAMOTRIGINE) [Concomitant]

REACTIONS (2)
  - Convulsion [None]
  - Insomnia [None]
